FAERS Safety Report 18164600 (Version 1)
Quarter: 2020Q3

REPORT INFORMATION
  Report Type: Report from Study
  Country: GB (occurrence: GB)
  Receive Date: 20200818
  Receipt Date: 20200818
  Transmission Date: 20201103
  Serious: Yes (Other)
  Sender: FDA-Public Use
  Company Number: NVSC2020GB227836

PATIENT
  Sex: Male

DRUGS (1)
  1. COSENTYX [Suspect]
     Active Substance: SECUKINUMAB
     Indication: PSORIASIS
     Dosage: 300 MG (ON WEEKS 0,1,2,3 AND 4 FOLLOWED BY MONTHLY)
     Route: 058
     Dates: start: 2018

REACTIONS (2)
  - Post procedural complication [Recovered/Resolved]
  - Post procedural infection [Recovered/Resolved]
